FAERS Safety Report 24539394 (Version 1)
Quarter: 2024Q4

REPORT INFORMATION
  Report Type: Spontaneous
  Country: PL (occurrence: PL)
  Receive Date: 20241023
  Receipt Date: 20241023
  Transmission Date: 20250114
  Serious: Yes (Life-Threatening, Hospitalization, Other)
  Sender: SANDOZ
  Company Number: PL-002147023-PHHY2019PL027222

PATIENT
  Age: 52 Year
  Sex: Male

DRUGS (1)
  1. METFORMIN HYDROCHLORIDE [Suspect]
     Active Substance: METFORMIN HYDROCHLORIDE
     Indication: Type 2 diabetes mellitus
     Dosage: UNK
     Route: 065

REACTIONS (16)
  - Lactic acidosis [Unknown]
  - Labelled drug-food interaction medication error [Unknown]
  - Atrial fibrillation [Unknown]
  - Ventricular arrhythmia [Unknown]
  - Condition aggravated [Unknown]
  - Abdominal pain [Unknown]
  - Metabolic acidosis [Unknown]
  - Respiratory rate increased [Unknown]
  - Chest pain [Unknown]
  - Blood pressure decreased [Unknown]
  - Abdominal tenderness [Unknown]
  - Rales [Unknown]
  - Nausea [Unknown]
  - General physical condition abnormal [Unknown]
  - Vomiting [Unknown]
  - Heart rate increased [Unknown]
